FAERS Safety Report 19004141 (Version 5)
Quarter: 2022Q4

REPORT INFORMATION
  Report Type: Other
  Country: US (occurrence: None)
  Receive Date: 20210312
  Receipt Date: 20221122
  Transmission Date: 20230112
  Serious: Yes (Hospitalization, Other)
  Sender: FDA-Public Use
  Company Number: US-ROCHE-2771836

PATIENT
  Age: 75 Year
  Sex: Female
  Weight: 82.628 kg

DRUGS (15)
  1. RITUXAN [Suspect]
     Active Substance: RITUXIMAB
     Indication: Granulomatosis with polyangiitis
     Dosage: WEEK(S) 0 AND WEEK(S) 2 EVERY 6 MONTH(S)
     Route: 042
     Dates: start: 20130521, end: 202007
  2. RITUXAN [Suspect]
     Active Substance: RITUXIMAB
     Indication: Renal disorder
     Route: 042
  3. RITUXAN [Suspect]
     Active Substance: RITUXIMAB
     Route: 042
     Dates: start: 20110805, end: 20200721
  4. RITUXAN [Suspect]
     Active Substance: RITUXIMAB
     Dosage: 500 MG
     Route: 042
  5. RITUXAN [Suspect]
     Active Substance: RITUXIMAB
     Route: 042
     Dates: start: 20131125, end: 202011
  6. CELLCEPT [Suspect]
     Active Substance: MYCOPHENOLATE MOFETIL
     Indication: Granulomatosis with polyangiitis
     Route: 048
     Dates: start: 20080102, end: 20201110
  7. CELLCEPT [Suspect]
     Active Substance: MYCOPHENOLATE MOFETIL
     Indication: Renal disorder
  8. BACTRIM [Concomitant]
     Active Substance: SULFAMETHOXAZOLE\TRIMETHOPRIM
  9. FOSAMAX [Concomitant]
     Active Substance: ALENDRONATE SODIUM
  10. OSCAL D [Concomitant]
     Active Substance: CALCIUM CARBONATE\CHOLECALCIFEROL
  11. TRAMADOL [Concomitant]
     Active Substance: TRAMADOL
  12. WELLBUTRIN [Concomitant]
     Active Substance: BUPROPION HYDROCHLORIDE
  13. ATORVASTATIN [Concomitant]
     Active Substance: ATORVASTATIN
  14. LISINOPRIL [Concomitant]
     Active Substance: LISINOPRIL
  15. MAGNESIUM [Concomitant]
     Active Substance: MAGNESIUM

REACTIONS (6)
  - Hernia [Unknown]
  - Norovirus infection [Unknown]
  - Off label use [Unknown]
  - Viral infection [Recovered/Resolved]
  - Bladder transitional cell carcinoma [Not Recovered/Not Resolved]
  - Off label use [Unknown]

NARRATIVE: CASE EVENT DATE: 20201110
